FAERS Safety Report 8024105-1 (Version None)
Quarter: 2011Q4

REPORT INFORMATION
  Report Type: 
  Country: None (occurrence: None)
  Receive Date: 20111130
  Receipt Date: 20101007
  Transmission Date: 20120403
  Serious: Yes (Hospitalization)
  Sender: FDA-Public Use
  Company Number: 316175

PATIENT
  Age: 79 Year
  Sex: Female
  Weight: 117.9 kg

DRUGS (9)
  1. METOPROLOL TARTRATE [Concomitant]
  2. ZETIA [Concomitant]
  3. BUMETANIDE [Concomitant]
  4. NEXIUM [Concomitant]
  5. POTASSIUM CHLORIDE [Concomitant]
  6. NOVOLOG [Suspect]
     Indication: TYPE 2 DIABETES MELLITUS
     Dosage: SUBCUTANEOUS
     Route: 058
  7. XANAX [Concomitant]
  8. LANTUS [Suspect]
     Indication: TYPE 2 DIABETES MELLITUS
  9. COZAAR [Concomitant]

REACTIONS (1)
  - HYPOGLYCAEMIC UNCONSCIOUSNESS [None]
